FAERS Safety Report 5227888-9 (Version None)
Quarter: 2007Q1

REPORT INFORMATION
  Report Type: 
  Country: None (occurrence: None)
  Receive Date: 20070202
  Receipt Date: 20070123
  Transmission Date: 20070707
  Serious: Yes (Life-Threatening, Hospitalization, Disabling, Other)
  Sender: FDA-Public Use
  Company Number: MY-PFIZER INC-2006150313

PATIENT
  Age: 43 Year
  Sex: Male

DRUGS (7)
  1. SULPERAZON [Suspect]
     Indication: PROPHYLAXIS
     Dosage: DAILY DOSE:1GRAM
     Route: 042
     Dates: start: 20060902, end: 20060907
  2. MORPHINE [Concomitant]
  3. ATRACURIUM BESYLATE [Concomitant]
  4. PROPOFOL [Concomitant]
  5. DRUG, UNSPECIFIED [Concomitant]
  6. DILANTIN [Concomitant]
  7. ANTIEPILEPTICS [Concomitant]

REACTIONS (2)
  - BRADYCARDIA [None]
  - HYPOTENSION [None]
